FAERS Safety Report 9076108 (Version 1)
Quarter: 2013Q1

REPORT INFORMATION
  Report Type: Report from Study
  Country: US (occurrence: US)
  Receive Date: 20130129
  Receipt Date: 20130129
  Transmission Date: 20140127
  Serious: No
  Sender: FDA-Public Use
  Company Number: US-ABBOTT-12P-163-0932521-00

PATIENT
  Sex: Female
  Weight: 44.49 kg

DRUGS (10)
  1. HUMIRA 40 MG/0.8 ML PEN [Suspect]
     Indication: CROHN^S DISEASE
     Route: 058
     Dates: start: 200901
  2. ENTOCORT [Concomitant]
     Indication: CROHN^S DISEASE
  3. LOMOTIL [Concomitant]
     Indication: CROHN^S DISEASE
     Dates: start: 2005
  4. BENTYL [Concomitant]
     Indication: CROHN^S DISEASE
  5. BACLOFEN [Concomitant]
     Indication: CROHN^S DISEASE
  6. WELCOHL [Concomitant]
     Indication: CROHN^S DISEASE
  7. PROVIGIL [Concomitant]
     Indication: PRODUCT USED FOR UNKNOWN INDICATION
  8. NORTRIPTYLINE [Concomitant]
     Indication: NERVOUS SYSTEM DISORDER
     Route: 048
     Dates: start: 201103
  9. GABAPENTIN [Concomitant]
     Indication: FIBROMYALGIA
  10. ESTROVEN [Concomitant]
     Indication: POSTMENOPAUSE

REACTIONS (5)
  - Therapeutic response unexpected [Not Recovered/Not Resolved]
  - Therapeutic response unexpected [Not Recovered/Not Resolved]
  - Muscle twitching [Recovering/Resolving]
  - Dyskinesia [Recovering/Resolving]
  - Nervous system disorder [Recovering/Resolving]
